FAERS Safety Report 5026022-8 (Version None)
Quarter: 2006Q2

REPORT INFORMATION
  Report Type: 
  Country: None (occurrence: None)
  Receive Date: 20060614
  Receipt Date: 20060427
  Transmission Date: 20061013
  Serious: Yes (Other)
  Sender: FDA-Public Use
  Company Number: US-ROCHE-446181

PATIENT
  Age: 32 Year
  Sex: Female
  Weight: 97.5 kg

DRUGS (2)
  1. ACCUTANE [Suspect]
     Route: 048
     Dates: start: 20051121, end: 20060321
  2. ORTHO-NOVUM [Concomitant]
     Indication: CONTRACEPTION
     Route: 048
     Dates: start: 20051121

REACTIONS (4)
  - DYSPNOEA [None]
  - INSOMNIA [None]
  - NASOPHARYNGITIS [None]
  - VIRAL UPPER RESPIRATORY TRACT INFECTION [None]
